FAERS Safety Report 8682322 (Version 3)
Quarter: 2012Q4

REPORT INFORMATION
  Report Type: 
  Country: US (occurrence: US)
  Receive Date: 20120725
  Receipt Date: 20120926
  Transmission Date: 20130627
  Serious: Yes (Death, Hospitalization)
  Sender: FDA-Public Use
  Company Number: US-ALEXION PHARMACEUTICALS INC.-A201201378

PATIENT
  Age: 91 Year
  Sex: Male
  Weight: 65 kg

DRUGS (10)
  1. SOLIRIS 300MG [Suspect]
     Indication: PAROXYSMAL NOCTURNAL HAEMOGLOBINURIA
     Dosage: 900 mg, single
     Route: 042
     Dates: start: 20120530, end: 20120530
  2. SOLIRIS 300MG [Suspect]
     Dosage: 600 mg, qw
     Route: 042
     Dates: start: 20120502, end: 20120523
  3. COUMADIN [Concomitant]
     Indication: THROMBOSIS PROPHYLAXIS
     Dosage: 2 mg, qd
     Route: 048
     Dates: end: 20120723
  4. NEURONTIN [Concomitant]
     Indication: NEUROPATHY PERIPHERAL
     Dosage: 100 mg, tid
     Route: 048
     Dates: end: 20120723
  5. REVLIMID [Concomitant]
     Indication: PAROXYSMAL NOCTURNAL HAEMOGLOBINURIA
     Dosage: 10 mg, qd
     Route: 048
     Dates: start: 20120709, end: 20120723
  6. REVLIMID [Concomitant]
     Indication: MYELODYSPLASTIC SYNDROME
  7. PREDNISONE [Concomitant]
     Indication: PAROXYSMAL NOCTURNAL HAEMOGLOBINURIA
     Dosage: 20 mg, qd x 3 days
     Route: 048
     Dates: end: 20120723
  8. PREDNISONE [Concomitant]
     Indication: MYELODYSPLASTIC SYNDROME
  9. ZOFRAN [Concomitant]
     Indication: NAUSEA
     Dosage: 8 mg, prn
     Route: 048
     Dates: end: 20120723
  10. COMPAZINE [Concomitant]
     Indication: NAUSEA
     Dosage: 10 mg, prn Q4-6H
     Route: 048
     Dates: end: 20120723

REACTIONS (4)
  - Death [Fatal]
  - Muscular weakness [Not Recovered/Not Resolved]
  - Fall [Recovered/Resolved]
  - Mental status changes [Not Recovered/Not Resolved]
